FAERS Safety Report 6263166-7 (Version None)
Quarter: 2009Q3

REPORT INFORMATION
  Report Type: 
  Country: None (occurrence: None)
  Receive Date: 20090708
  Receipt Date: 20090708
  Transmission Date: 20100115
  Serious: Yes (Disabling)
  Sender: FDA-Public Use
  Company Number: None

PATIENT
  Sex: Male
  Weight: 72.7 kg

DRUGS (1)
  1. ZICAM NO-DRIP LIQUID NASAL GEL MATRIXX INITIATIVES, INC. [Suspect]
     Indication: NASOPHARYNGITIS
     Dosage: 1-SPRAY PER NOSTRIL PER DAY ONCE A DAY NOSE WEEK IN 2005
     Route: 045

REACTIONS (1)
  - HYPOSMIA [None]
